FAERS Safety Report 8778751 (Version 1)
Quarter: 2012Q4

REPORT INFORMATION
  Report Type: 
  Country: US (occurrence: US)
  Receive Date: 20120917
  Receipt Date: 20120917
  Transmission Date: 20130627
  Serious: No
  Sender: FDA-Public Use
  Company Number: US-PFIZER INC-2012219289

PATIENT
  Age: 26 Year
  Sex: Female
  Weight: 58.96 kg

DRUGS (3)
  1. DEPO-PROVERA [Suspect]
     Indication: CONTRACEPTION
     Dosage: UNK, every 12 weeks
     Dates: start: 200912, end: 201007
  2. PROGESTERONE [Suspect]
     Indication: AMENORRHOEA
     Dosage: UNK, 2x/day
     Dates: start: 201107, end: 2011
  3. PROGESTERONE [Suspect]
     Indication: AMENORRHOEA
     Dosage: UNK
     Dates: start: 201202, end: 2012

REACTIONS (2)
  - Amenorrhoea [Not Recovered/Not Resolved]
  - Drug ineffective [Unknown]
